FAERS Safety Report 5296655-2 (Version None)
Quarter: 2007Q2

REPORT INFORMATION
  Report Type: 
  Country: None (occurrence: None)
  Receive Date: 20070413
  Receipt Date: 20070403
  Transmission Date: 20071010
  Serious: Yes (Death, Hospitalization)
  Sender: FDA-Public Use
  Company Number: IT-PFIZER INC-2007012661

PATIENT
  Sex: Female
  Weight: 50 kg

DRUGS (7)
  1. SU-011,248 [Suspect]
     Indication: RENAL CANCER METASTATIC
     Route: 048
     Dates: start: 20061108, end: 20061128
  2. NADROPARINA [Concomitant]
     Route: 058
     Dates: start: 20061007, end: 20061226
  3. OXYCODONE HCL [Concomitant]
     Route: 048
     Dates: start: 20061107, end: 20061219
  4. LANSOPRAZOLE [Concomitant]
     Route: 048
     Dates: start: 20061107, end: 20061227
  5. ALPRAZOLAM [Concomitant]
     Route: 048
     Dates: start: 20060107, end: 20070109
  6. ZOLEDRONIC ACID [Concomitant]
     Route: 042
     Dates: start: 20060913, end: 20061206
  7. TORSEMIDE [Concomitant]
     Route: 048
     Dates: start: 20061011, end: 20061206

REACTIONS (2)
  - DYSPNOEA [None]
  - PULMONARY EMBOLISM [None]
